FAERS Safety Report 12689647 (Version 4)
Quarter: 2018Q3

REPORT INFORMATION
  Report Type: Spontaneous
  Country: ES (occurrence: ES)
  Receive Date: 20160826
  Receipt Date: 20180725
  Transmission Date: 20181010
  Serious: Yes (Other)
  Sender: FDA-Public Use
  Company Number: ES-AUROBINDO-AUR-APL-2016-10934

PATIENT
  Age: 49 Year
  Sex: Male

DRUGS (8)
  1. PARACETAMOL [Suspect]
     Active Substance: ACETAMINOPHEN
     Indication: ANALGESIC THERAPY
     Dosage: UNK
     Route: 065
  2. DIPYRONE [Suspect]
     Active Substance: DIPYRONE
     Indication: NASOPHARYNGITIS
  3. METAMIZOLE [Interacting]
     Active Substance: METAMIZOLE
     Indication: INFLUENZA LIKE ILLNESS
     Dosage: 575 MILLIGRAM, 3 TIMES A DAY
     Route: 048
  4. GEMFIBROZIL. [Interacting]
     Active Substance: GEMFIBROZIL
     Indication: HYPERTENSION
     Dosage: UNK
     Route: 065
  5. GEMFIBROZIL. [Interacting]
     Active Substance: GEMFIBROZIL
     Indication: HYPERTRIGLYCERIDAEMIA
  6. DIPYRONE [Suspect]
     Active Substance: DIPYRONE
     Indication: INFLUENZA
     Dosage: 575 MG / 8 HRS
     Route: 048
  7. METAMIZOLE [Interacting]
     Active Substance: METAMIZOLE
     Indication: INFLUENZA LIKE ILLNESS
  8. VALSARTAN. [Interacting]
     Active Substance: VALSARTAN
     Indication: HYPERTENSION
     Dosage: UNK
     Route: 065

REACTIONS (16)
  - Tubulointerstitial nephritis [Recovered/Resolved]
  - Decreased appetite [Recovered/Resolved]
  - Nausea [Recovered/Resolved]
  - Acute kidney injury [Recovered/Resolved]
  - Renal tubular necrosis [Recovered/Resolved]
  - Proteinuria [Recovered/Resolved]
  - Fanconi syndrome [Recovered/Resolved]
  - Hyperlactacidaemia [Recovered/Resolved]
  - Glomerular filtration rate abnormal [Recovered/Resolved]
  - Nephropathy toxic [Recovered/Resolved]
  - Hypouricaemia [Recovered/Resolved]
  - Asthenia [Recovered/Resolved]
  - Abdominal pain [Recovered/Resolved]
  - Condition aggravated [Recovered/Resolved]
  - Drug interaction [Recovered/Resolved]
  - Renal tubular disorder [Recovered/Resolved]
